FAERS Safety Report 11196204 (Version 1)
Quarter: 2015Q2

REPORT INFORMATION
  Report Type: Spontaneous
  Country: TH (occurrence: None)
  Receive Date: 20150615
  Receipt Date: 20150615
  Transmission Date: 20150821
  Serious: Yes (Hospitalization)
  Sender: FDA-Public Use
  Company Number: TH-DRAXIINC-000453

PATIENT
  Age: 64 Year
  Sex: Female

DRUGS (1)
  1. RADIOACTIVE IODINE [Suspect]
     Active Substance: SODIUM IODIDE I-131
     Indication: RADIOACTIVE IODINE THERAPY
     Dates: start: 201206, end: 201206

REACTIONS (21)
  - Vomiting [None]
  - Fatigue [None]
  - Gait disturbance [None]
  - Thyroxine decreased [None]
  - Nausea [None]
  - Blood sodium decreased [None]
  - Decreased appetite [None]
  - Dehydration [None]
  - Hypomagnesaemia [None]
  - Somnolence [None]
  - Skin turgor decreased [None]
  - Dizziness [None]
  - Abdominal discomfort [None]
  - Lethargy [None]
  - Tachycardia [None]
  - Depressed level of consciousness [None]
  - Hypocalcaemia [None]
  - Lid sulcus deepened [None]
  - Hypokalaemia [None]
  - Blood thyroid stimulating hormone increased [None]
  - Lip dry [None]

NARRATIVE: CASE EVENT DATE: 201206
